FAERS Safety Report 25650661 (Version 1)
Quarter: 2025Q3

REPORT INFORMATION
  Report Type: Spontaneous
  Country: US (occurrence: None)
  Receive Date: 20250805
  Receipt Date: 20250805
  Transmission Date: 20251021
  Serious: Yes (Disabling, Other)
  Sender: FDA-CTU
  Company Number: None

PATIENT
  Age: 31 Year
  Sex: Male
  Weight: 51.3 kg

DRUGS (3)
  1. DEVICE [Suspect]
     Active Substance: DEVICE
     Indication: Diabetes insipidus
     Dosage: 2 TOT -TOTAL 3 TIMES  DAY NASAL
     Route: 045
     Dates: start: 20210101
  2. DEVICE [Suspect]
     Active Substance: DEVICE
     Indication: Prader-Willi syndrome
  3. OXYTOCIN [Suspect]
     Active Substance: OXYTOCIN
     Dates: start: 20210101

REACTIONS (4)
  - Product compounding quality issue [None]
  - Incorrect dose administered by device [None]
  - Device malfunction [None]
  - Product quality issue [None]

NARRATIVE: CASE EVENT DATE: 20250405
